FAERS Safety Report 16286476 (Version 1)
Quarter: 2019Q2

REPORT INFORMATION
  Report Type: Spontaneous
  Country: US (occurrence: US)
  Receive Date: 20190508
  Receipt Date: 20190508
  Transmission Date: 20190711
  Serious: No
  Sender: FDA-Public Use
  Company Number: US-PERRIGO-19US004005

PATIENT
  Sex: Female

DRUGS (5)
  1. ESTRADIOL. [Suspect]
     Active Substance: ESTRADIOL
     Dosage: 1 GRAM TWICE WEEKLY FOR 1 WEEK
     Route: 067
  2. ESTRADIOL. [Suspect]
     Active Substance: ESTRADIOL
     Dosage: UNKNOWN
     Route: 067
  3. ESTRADIOL. [Suspect]
     Active Substance: ESTRADIOL
     Indication: PRODUCT USED FOR UNKNOWN INDICATION
     Dosage: 2 GRAMS DAILY FOR 1 WEEK
     Route: 067
  4. ESTRADIOL. [Suspect]
     Active Substance: ESTRADIOL
     Dosage: 1 GRAM DAILY FOR 2 WEEKS
     Route: 067
  5. ESTRADIOL. [Suspect]
     Active Substance: ESTRADIOL
     Dosage: 1 GRAM WEEKLY
     Route: 067

REACTIONS (2)
  - Underdose [Unknown]
  - Product dose omission [Unknown]
